FAERS Safety Report 12098524 (Version 1)
Quarter: 2016Q1

REPORT INFORMATION
  Report Type: Spontaneous
  Country: FR (occurrence: FR)
  Receive Date: 20160222
  Receipt Date: 20160222
  Transmission Date: 20160526
  Serious: Yes (Hospitalization)
  Sender: FDA-Public Use
  Company Number: FR-ROCHE-1712600

PATIENT
  Age: 80 Year
  Sex: Male

DRUGS (2)
  1. LEVACT (FRANCE) [Suspect]
     Active Substance: BENDAMUSTINE HYDROCHLORIDE
     Indication: CHRONIC LYMPHOCYTIC LEUKAEMIA
     Dosage: SECOND CYCLE RECEIVED ON 04/JAN AND 05/JAN/2016
     Route: 042
     Dates: start: 20151207
  2. GAZYVARO [Suspect]
     Active Substance: OBINUTUZUMAB
     Indication: CHRONIC LYMPHOCYTIC LEUKAEMIA
     Dosage: SECOND CYCLE RECEIVED ON 04/JAN AND 05/JAN/2016
     Route: 065
     Dates: start: 20151207

REACTIONS (1)
  - Lung disorder [Recovering/Resolving]
